FAERS Safety Report 8496821-9 (Version None)
Quarter: 2012Q3

REPORT INFORMATION
  Report Type: 
  Country: None (occurrence: None)
  Receive Date: 20120709
  Receipt Date: 20120703
  Transmission Date: 20120928
  Serious: Yes (Hospitalization, Other)
  Sender: FDA-Public Use
  Company Number: US-PFIZER INC-2012140556

PATIENT
  Sex: Female
  Weight: 65 kg

DRUGS (7)
  1. GEODON [Suspect]
     Indication: BIPOLAR DISORDER
     Dosage: 80 MG, 1X/DAY
     Route: 048
     Dates: start: 20120529, end: 20120602
  2. VISTARIL [Concomitant]
     Indication: ANXIETY
     Dosage: 50 MG, 3X/DAY
     Dates: start: 20120424
  3. GEODON [Suspect]
     Indication: BORDERLINE PERSONALITY DISORDER
     Dosage: UNK
     Route: 048
  4. ZOLOFT [Concomitant]
     Indication: BIPOLAR DISORDER
     Dosage: 50 MG, 1X/DAY
     Dates: start: 20120424
  5. ZOLOFT [Concomitant]
     Indication: ANXIETY
     Dosage: UNK
  6. QUETIAPINE [Concomitant]
  7. ZOLOFT [Concomitant]
     Indication: DEPRESSION

REACTIONS (12)
  - MALAISE [None]
  - LOSS OF CONSCIOUSNESS [None]
  - EYE MOVEMENT DISORDER [None]
  - MUSCLE RIGIDITY [None]
  - WITHDRAWAL SYNDROME [None]
  - PULSE PRESSURE INCREASED [None]
  - BLOOD PRESSURE FLUCTUATION [None]
  - BACK DISORDER [None]
  - HYPERTENSION [None]
  - EXTRAPYRAMIDAL DISORDER [None]
  - DRUG INTOLERANCE [None]
  - MUSCLE SPASMS [None]
